FAERS Safety Report 7202011-X (Version None)
Quarter: 2010Q4

REPORT INFORMATION
  Report Type: 
  Country: None (occurrence: None)
  Receive Date: 20101215
  Receipt Date: 20101130
  Transmission Date: 20110411
  Serious: Yes (Hospitalization)
  Sender: FDA-Public Use
  Company Number: 2010005099

PATIENT
  Age: 63 Year
  Sex: Male
  Weight: 101.515 kg

DRUGS (8)
  1. ERLOTINIB (ERLOTINB) (TABLET) (ERLOTINIB) [Suspect]
     Indication: NON-SMALL CELL LUNG CANCER METASTATIC
     Dosage: (150 MG,QD),ORAL
     Route: 048
     Dates: start: 20101103, end: 20101121
  2. PAZOPANIB/PLACEBO [Suspect]
     Indication: NON-SMALL CELL LUNG CANCER METASTATIC
     Dosage: (600 MG,QD),ORAL
     Route: 048
     Dates: start: 20101103, end: 20101121
  3. ZYRTEC [Concomitant]
  4. VICODIN [Concomitant]
  5. DOXYCYCLINE [Concomitant]
  6. LIDEX [Concomitant]
  7. LEXAPRO [Concomitant]
  8. CEFEPIME [Concomitant]

REACTIONS (1)
  - MENTAL STATUS CHANGES [None]
